FAERS Safety Report 4987274-3 (Version None)
Quarter: 2006Q2

REPORT INFORMATION
  Report Type: 
  Country: None (occurrence: None)
  Receive Date: 20060501
  Receipt Date: 20041215
  Transmission Date: 20061013
  Serious: Yes (Hospitalization, Other)
  Sender: FDA-Public Use
  Company Number: US-MERCK-0412USA01981

PATIENT
  Age: 72 Year
  Sex: Female
  Weight: 57 kg

DRUGS (18)
  1. VIOXX [Suspect]
     Indication: ARTHRITIS
     Route: 048
     Dates: start: 20000401, end: 20041001
  2. VIOXX [Suspect]
     Indication: OSTEOPOROSIS
     Route: 048
     Dates: start: 20000401, end: 20041001
  3. ESTRADIOL [Concomitant]
     Route: 048
  4. MIACALCIN [Concomitant]
     Route: 048
  5. ENALAPRIL MALEATE [Concomitant]
     Route: 048
  6. LEVOXYL [Concomitant]
     Route: 048
  7. DARVOCET [Concomitant]
     Route: 048
  8. CYCLOBENZAPRINE HYDROCHLORIDE [Concomitant]
     Route: 048
  9. XALATAN [Concomitant]
     Route: 047
  10. PLAVIX [Concomitant]
     Route: 048
  11. ACIPHEX [Concomitant]
     Route: 048
  12. LIPITOR [Concomitant]
     Route: 048
  13. CALCIUM (UNSPECIFIED) AND VITAMIN D (UNSPECIFIED) [Concomitant]
     Route: 048
  14. IRON (UNSPECIFIED) [Concomitant]
     Route: 048
  15. ZOCOR [Concomitant]
     Route: 048
  16. CENTRUM SILVER [Concomitant]
     Route: 065
  17. ESTRATEST [Concomitant]
     Route: 065
  18. CYTOTEC [Concomitant]
     Route: 065

REACTIONS (32)
  - ABDOMINAL PAIN [None]
  - ABDOMINAL STRANGULATED HERNIA [None]
  - ACETABULUM FRACTURE [None]
  - ADENOMA BENIGN [None]
  - CAROTID ARTERY OCCLUSION [None]
  - CARPAL TUNNEL SYNDROME [None]
  - CEREBROVASCULAR ACCIDENT [None]
  - CHEST DISCOMFORT [None]
  - CONFUSIONAL STATE [None]
  - CUBITAL TUNNEL SYNDROME [None]
  - DIVERTICULUM [None]
  - DYSPNOEA [None]
  - FAECES DISCOLOURED [None]
  - FALL [None]
  - GASTRITIS [None]
  - HAEMATURIA [None]
  - HAEMORRHOIDS [None]
  - HIP FRACTURE [None]
  - HYPOAESTHESIA [None]
  - HYPOTENSION [None]
  - INTESTINAL OBSTRUCTION [None]
  - NAUSEA [None]
  - NECK PAIN [None]
  - OVARIAN CYST [None]
  - PARAESTHESIA [None]
  - PELVIC FRACTURE [None]
  - POSTOPERATIVE WOUND INFECTION [None]
  - SYNCOPE [None]
  - TINEL'S SIGN [None]
  - TRANSIENT ISCHAEMIC ATTACK [None]
  - URINARY TRACT INFECTION [None]
  - VOMITING [None]
